FAERS Safety Report 24642990 (Version 1)
Quarter: 2024Q4

REPORT INFORMATION
  Report Type: Spontaneous
  Country: US (occurrence: None)
  Receive Date: 20241120
  Receipt Date: 20241120
  Transmission Date: 20250115
  Serious: Yes (Death)
  Sender: Public
  Company Number: None

PATIENT
  Age: 75 Year
  Sex: Male

DRUGS (1)
  1. POMALYST [Suspect]
     Active Substance: POMALIDOMIDE
     Indication: Plasma cell myeloma
     Dosage: FREQUENCY : DAILY;?
     Route: 048
     Dates: start: 20210415, end: 20240824

REACTIONS (4)
  - Respiratory failure [None]
  - Cardiac failure congestive [None]
  - Atrial fibrillation [None]
  - Therapy non-responder [None]

NARRATIVE: CASE EVENT DATE: 20240824
